FAERS Safety Report 11162069 (Version 1)
Quarter: 2015Q2

REPORT INFORMATION
  Report Type: Report from Study
  Country: US (occurrence: None)
  Receive Date: 20150602
  Receipt Date: 20150602
  Transmission Date: 20150821
  Serious: Yes (Hospitalization)
  Sender: FDA-Public Use
  Company Number: 2015SGN00846

PATIENT
  Age: 62 Year
  Sex: Male
  Weight: 89.9 kg

DRUGS (17)
  1. DIFLUCAN [Concomitant]
     Active Substance: FLUCONAZOLE
  2. NYSTATIN. [Concomitant]
     Active Substance: NYSTATIN
  3. ASPIRIN /00002701/ (ACETYLSALICYLIC ACID) [Concomitant]
  4. DOXORUBICIN (DOXORUBICIN) INJECTION [Suspect]
     Active Substance: DOXORUBICIN
     Indication: T-CELL LYMPHOMA
     Dosage: 50 MG/M2, Q21D
     Route: 042
     Dates: start: 20150316, end: 20150427
  5. ZOFRAN /00955301/ (ONDANSETRON) [Concomitant]
  6. STUDY DRUG [Suspect]
     Active Substance: INVESTIGATIONAL PRODUCT
     Indication: T-CELL LYMPHOMA
     Dates: start: 20150316, end: 20150427
  7. XANAX [Concomitant]
     Active Substance: ALPRAZOLAM
  8. ULORIC [Concomitant]
     Active Substance: FEBUXOSTAT
  9. PREDNISONE (PREDNISONE) ORAL [Suspect]
     Active Substance: PREDNISONE
     Indication: T-CELL LYMPHOMA
     Dosage: 100 MG, QCYCLE
     Route: 048
     Dates: start: 20150316, end: 20150501
  10. CYCLOPHOSPHAMIDE (CYCLOPHOSPHAMIDE) INJECTION [Suspect]
     Active Substance: CYCLOPHOSPHAMIDE
     Indication: T-CELL LYMPHOMA
     Dosage: 750 MG/M2, Q21D
     Route: 042
     Dates: start: 20150316, end: 20150427
  11. HYDRODIURIL (HYDROCHLOROTHIAZIDE) [Concomitant]
  12. MOTRIN [Concomitant]
     Active Substance: IBUPROFEN
  13. OXYCONTIN [Concomitant]
     Active Substance: OXYCODONE HYDROCHLORIDE
  14. EXFORGE (AMLODIPINE BESILATE, VALSARTAN) [Concomitant]
  15. MAGIC MOUTHWASH [Concomitant]
     Active Substance: DIPHENHYDRAMINE HYDROCHLORIDE\LIDOCAINE HYDROCHLORIDE\NYSTATIN
  16. NEBIVOLOL [Concomitant]
     Active Substance: NEBIVOLOL
  17. OXYCODONE [Concomitant]
     Active Substance: OXYCODONE

REACTIONS (3)
  - Pulmonary embolism [None]
  - Deep vein thrombosis [None]
  - Haemoglobin decreased [None]

NARRATIVE: CASE EVENT DATE: 20150517
